FAERS Safety Report 9280667 (Version 1)
Quarter: 2013Q2

REPORT INFORMATION
  Report Type: Spontaneous
  Country: US (occurrence: None)
  Receive Date: 20130502
  Receipt Date: 20130502
  Transmission Date: 20140414
  Serious: Yes (Other)
  Sender: FDA-Public Use
  Company Number: 001520137A

PATIENT
  Age: 16 Year
  Sex: Female

DRUGS (3)
  1. PROACTIV [Suspect]
     Indication: ACNE
     Dosage: DERMAL?
     Dates: start: 20130114, end: 20130203
  2. PROACTIV SOLUTION REPAIRING TREATMENT [Suspect]
     Indication: ACNE
     Dosage: DERMAL?
     Dates: start: 20130114, end: 20130203
  3. PROACTIV SOLUTION OIL FREE MOISTURE SPF 15 [Suspect]
     Indication: ACNE
     Dosage: DERMAL?
     Dates: start: 20130114, end: 20130203

REACTIONS (5)
  - Swelling face [None]
  - Lip swelling [None]
  - Urticaria [None]
  - Dyspnoea [None]
  - Eye swelling [None]
